FAERS Safety Report 24956766 (Version 1)
Quarter: 2025Q1

REPORT INFORMATION
  Report Type: Spontaneous
  Country: CA (occurrence: CA)
  Receive Date: 20250211
  Receipt Date: 20250211
  Transmission Date: 20250409
  Serious: Yes (Hospitalization)
  Sender: PFIZER
  Company Number: CA-PFIZER INC-PV202400126716

PATIENT
  Age: 82 Year
  Sex: Male
  Weight: 87 kg

DRUGS (3)
  1. INLYTA [Suspect]
     Active Substance: AXITINIB
     Indication: Renal cancer
     Dosage: 2 MG, TWICE A DAY
     Route: 048
     Dates: start: 20240720
  2. INLYTA [Suspect]
     Active Substance: AXITINIB
     Dosage: 1 MG, TWICE A DAY
     Route: 048
  3. PEMBROLIZUMAB [Concomitant]
     Active Substance: PEMBROLIZUMAB
     Dosage: UNK, EVERY 21 DAYS

REACTIONS (4)
  - Gait disturbance [Unknown]
  - Mobility decreased [Unknown]
  - Peripheral swelling [Unknown]
  - Off label use [Unknown]
